FAERS Safety Report 5896112-6 (Version None)
Quarter: 2008Q3

REPORT INFORMATION
  Report Type: 
  Country: None (occurrence: None)
  Receive Date: 20080924
  Receipt Date: 20080211
  Transmission Date: 20090109
  Serious: Yes (Other)
  Sender: FDA-Public Use
  Company Number: US-ASTRAZENECA-2007UW17996

PATIENT
  Age: 21598 Day
  Sex: Female

DRUGS (4)
  1. SEROQUEL [Suspect]
     Indication: BIPOLAR DISORDER
     Dosage: 100-300 MG
     Route: 048
     Dates: start: 20051007, end: 20060716
  2. RISPERDAL [Concomitant]
     Dates: start: 20001101
  3. RISPERDAL [Concomitant]
     Dosage: 0.5 MG-2 MG
     Dates: start: 20060714
  4. ZYPREXA [Concomitant]
     Dates: start: 20000321

REACTIONS (2)
  - ABDOMINAL PAIN UPPER [None]
  - PANCREATITIS ACUTE [None]
